FAERS Safety Report 11107610 (Version 1)
Quarter: 2015Q2

REPORT INFORMATION
  Report Type: Spontaneous
  Country: IN (occurrence: IN)
  Receive Date: 20150512
  Receipt Date: 20150512
  Transmission Date: 20150821
  Serious: Yes (Hospitalization)
  Sender: FDA-Public Use
  Company Number: PHHY2015IN054830

PATIENT
  Age: 43 Year
  Sex: Male

DRUGS (4)
  1. FENTANYL. [Suspect]
     Active Substance: FENTANYL
     Indication: PRODUCT USED FOR UNKNOWN INDICATION
     Dosage: 50 UG (0.83 UG/KG, IN DILUTION OF 1ML)
     Route: 042
  2. TRAMADOL [Suspect]
     Active Substance: TRAMADOL
     Indication: PRODUCT USED FOR UNKNOWN INDICATION
     Dosage: 75 MG (1.25 MG/KGN I DILUTION OF 1 ML)
     Route: 042
  3. IBUPROFEN. [Concomitant]
     Active Substance: IBUPROFEN
     Indication: ANALGESIC THERAPY
     Dosage: 200 MG, BID
     Route: 065
  4. GABAPENTIN. [Concomitant]
     Active Substance: GABAPENTIN
     Indication: ANALGESIC THERAPY
     Dosage: 150 MG, TID
     Route: 065

REACTIONS (5)
  - Ventricular extrasystoles [Recovering/Resolving]
  - Supraventricular tachycardia [Recovering/Resolving]
  - Ventricular fibrillation [Recovering/Resolving]
  - Ventricular tachycardia [Recovering/Resolving]
  - Agitation [Recovering/Resolving]
